FAERS Safety Report 18821326 (Version 3)
Quarter: 2021Q3

REPORT INFORMATION
  Report Type: Spontaneous
  Country: CA (occurrence: CA)
  Receive Date: 20210201
  Receipt Date: 20210909
  Transmission Date: 20211014
  Serious: Yes (Other)
  Sender: FDA-Public Use
  Company Number: CA-PFIZER INC-2021072868

PATIENT
  Age: 47 Year
  Sex: Male

DRUGS (2)
  1. SULFASALAZINE. [Suspect]
     Active Substance: SULFASALAZINE
     Dosage: 500 MG, DAILY
     Route: 048
  2. SULFASALAZINE. [Suspect]
     Active Substance: SULFASALAZINE
     Dosage: 500 MG, DAILY (TOOK FOR 1 WEEK)
     Route: 048
     Dates: start: 2010, end: 2010

REACTIONS (4)
  - Weight decreased [Unknown]
  - Arthralgia [Unknown]
  - C-reactive protein increased [Unknown]
  - Decreased appetite [Unknown]

NARRATIVE: CASE EVENT DATE: 2010
